FAERS Safety Report 4724070-6 (Version None)
Quarter: 2005Q3

REPORT INFORMATION
  Report Type: 
  Country: None (occurrence: None)
  Receive Date: 20050722
  Receipt Date: 20050718
  Transmission Date: 20060218
  Serious: Yes (Life-Threatening, Hospitalization)
  Sender: FDA-Public Use
  Company Number: 2005FR-00137

PATIENT
  Age: 76 Year
  Sex: Male

DRUGS (10)
  1. ASPIRIN [Suspect]
     Indication: MYOCARDIAL INFARCTION
     Dosage: 75 MG, ORAL
     Route: 048
  2. ASPIRIN [Suspect]
     Indication: PROPHYLAXIS
     Dosage: 75 MG, ORAL
     Route: 048
  3. GABAPENTIN [Concomitant]
  4. LERCANIDIPINE [Concomitant]
  5. DOXAZOSIN [Concomitant]
  6. BENDROFLUAZIDE [Concomitant]
  7. METFORMIN HCL [Concomitant]
  8. BUSCOPAN [Concomitant]
  9. SERETIDE [Concomitant]
  10. SIMVASTATIN [Concomitant]

REACTIONS (1)
  - GASTROINTESTINAL HAEMORRHAGE [None]
